FAERS Safety Report 16743736 (Version 1)
Quarter: 2019Q3

REPORT INFORMATION
  Report Type: Spontaneous
  Country: CZ (occurrence: CZ)
  Receive Date: 20190827
  Receipt Date: 20190827
  Transmission Date: 20191005
  Serious: Yes (Hospitalization)
  Sender: FDA-Public Use
  Company Number: CZ-TEVA-2019-CZ-1096327

PATIENT
  Age: 41 Year
  Sex: Female

DRUGS (1)
  1. AZITROMYCIN [Suspect]
     Active Substance: AZITHROMYCIN ANHYDROUS
     Indication: BRONCHITIS
     Route: 065

REACTIONS (3)
  - Diarrhoea [Unknown]
  - Intestinal haemorrhage [Unknown]
  - Gastrointestinal inflammation [Unknown]
